FAERS Safety Report 9520958 (Version 1)
Quarter: 2013Q1

REPORT INFORMATION
  Report Type: Spontaneous
  Country: US (occurrence: None)
  Receive Date: 20130305
  Receipt Date: 20130305
  Transmission Date: 20140127
  Serious: Yes (Other)
  Sender: FDA-Public Use
  Company Number: 163-21880-11082730

PATIENT
  Age: 77 Year
  Sex: Female
  Weight: 67.13 kg

DRUGS (19)
  1. REVLIMID [Suspect]
     Indication: PLASMA CELL MYELOMA
     Dosage: 10 MG, DAILY X 21 DAYS, PO
     Route: 048
     Dates: start: 20110301
  2. DEXAMETHASONE (DEXAMETHASONE) (UNKNOWN) [Concomitant]
  3. GABAPENTIN (GABAPENTIN) (UNKNOWN) (GABAPENTIN) [Concomitant]
  4. LISINOPRIL (LISINOPRIL) (UNKNOWN) [Concomitant]
  5. BUMATANIDE (BUMETANIDE) (UNKNOWN) [Concomitant]
  6. SIMVASTATIN [Concomitant]
  7. METOLAZONE (METOLAZONE) (UNKNOWN) [Concomitant]
  8. DIGOXIN (DIGOXIN) (UNKNOWN) (DIGOXIN) [Concomitant]
  9. NOVOLOG (INSULIN ASPART) (UNKNOWN) [Concomitant]
  10. GLIPIZIDE (GLIPIZIDE) (UNKNOWN) [Concomitant]
  11. PACARONE (AMIODARONE) (UNKNOWN) [Concomitant]
  12. KLOR-CON (POTASSIUM CHLORIDE) (UNKNOWN) [Concomitant]
  13. VITAMIN C (ASCORBIC ADID) (UNKNOWN) [Concomitant]
  14. METOPROLOL (METOPROLOL) (UNKNOWN) [Concomitant]
  15. WARFARIN (WARFARIN) (UNKNOWN) [Concomitant]
  16. IRON [Concomitant]
  17. MAGNESIUM (MAGNESIUM) (UNKNOWN) [Concomitant]
  18. CITRACAL PLUS (CALCIUM CITRATE W/COLECALCIFEROL) (UNKNOWN) [Concomitant]
  19. VITAMIN D (ERGOCALCIFEROL) (UNKNOWN) [Concomitant]

REACTIONS (6)
  - Pancytopenia [None]
  - Nervousness [None]
  - Gait disturbance [None]
  - Blood pressure decreased [None]
  - Dizziness [None]
  - Tremor [None]
